FAERS Safety Report 10911674 (Version 1)
Quarter: 2015Q1

REPORT INFORMATION
  Report Type: Spontaneous
  Country: US (occurrence: US)
  Receive Date: 20150313
  Receipt Date: 20150313
  Transmission Date: 20150721
  Serious: No
  Sender: FDA-Public Use
  Company Number: US-DRREDDYS-USA/USA/14/0043427

PATIENT
  Age: 46 Year
  Sex: Male
  Weight: 172.36 kg

DRUGS (1)
  1. AUGMENTIN [Suspect]
     Active Substance: AMOXICILLIN\CLAVULANATE POTASSIUM
     Indication: TOOTH ABSCESS
     Route: 048

REACTIONS (2)
  - Arthralgia [Recovering/Resolving]
  - Pruritus [Recovered/Resolved]
